FAERS Safety Report 7342095-1 (Version None)
Quarter: 2011Q1

REPORT INFORMATION
  Report Type: 
  Country: None (occurrence: None)
  Receive Date: 20110309
  Receipt Date: 20110304
  Transmission Date: 20110831
  Serious: Yes (Other)
  Sender: FDA-Public Use
  Company Number: DE-ALLERGAN-1103106US

PATIENT
  Age: 70 Year
  Sex: Male

DRUGS (3)
  1. AVASTIN [Concomitant]
     Indication: PRODUCT USED FOR UNKNOWN INDICATION
     Dosage: UNK
     Route: 031
     Dates: start: 20100622
  2. ASPIRIN [Concomitant]
  3. OZURDEX [Suspect]
     Indication: PRODUCT USED FOR UNKNOWN INDICATION
     Dosage: UNK
     Route: 031
     Dates: start: 20101025

REACTIONS (1)
  - CEREBROVASCULAR ACCIDENT [None]
